FAERS Safety Report 25756106 (Version 1)
Quarter: 2025Q3

REPORT INFORMATION
  Report Type: Spontaneous
  Country: JP (occurrence: JP)
  Receive Date: 20250903
  Receipt Date: 20250903
  Transmission Date: 20251020
  Serious: Yes (Life-Threatening, Hospitalization, Disabling, Other)
  Sender: BRACCO
  Company Number: JP-BAYER-2025A104682

PATIENT
  Age: 51 Year
  Sex: Male

DRUGS (1)
  1. IOPAMIRON [Suspect]
     Active Substance: IOPAMIDOL
     Indication: Diagnostic procedure

REACTIONS (7)
  - Anaphylactic shock [Unknown]
  - Pulseless electrical activity [Unknown]
  - Loss of consciousness [Not Recovered/Not Resolved]
  - Asphyxia [Recovered/Resolved with Sequelae]
  - Cardiac arrest [Recovered/Resolved with Sequelae]
  - Respiratory tract oedema [Recovered/Resolved with Sequelae]
  - Hypoxic-ischaemic encephalopathy [Unknown]

NARRATIVE: CASE EVENT DATE: 20250729
